FAERS Safety Report 11562448 (Version 2)
Quarter: 2015Q4

REPORT INFORMATION
  Report Type: Spontaneous
  Country: US (occurrence: US)
  Receive Date: 20150928
  Receipt Date: 20151102
  Transmission Date: 20160304
  Serious: Yes (Other)
  Sender: FDA-Public Use
  Company Number: US-SMITH AND NEPHEW, INC-2015SMT00296

PATIENT
  Age: 88 Year
  Sex: Male
  Weight: 68.27 kg

DRUGS (9)
  1. REGRANEX [Suspect]
     Active Substance: BECAPLERMIN
     Dosage: UNK, 1X/DAY
     Route: 061
     Dates: start: 20150904
  2. ZETIA [Concomitant]
     Active Substance: EZETIMIBE
  3. POTASSIUM [Concomitant]
     Active Substance: POTASSIUM
  4. REGRANEX [Suspect]
     Active Substance: BECAPLERMIN
     Indication: WOUND
     Dosage: UNK, 1X/DAY
     Route: 061
     Dates: start: 20150718, end: 20150829
  5. CLOBETASOL [Concomitant]
     Active Substance: CLOBETASOL
     Dosage: UNK, AS NEEDED
  6. PLAVIX [Concomitant]
     Active Substance: CLOPIDOGREL BISULFATE
  7. EPLERENONE. [Concomitant]
     Active Substance: EPLERENONE
  8. WARFARIN [Concomitant]
     Active Substance: WARFARIN
     Dosage: UNK, 1X/DAY
  9. HYDROCHLOROTHIAZIDE. [Concomitant]
     Active Substance: HYDROCHLOROTHIAZIDE
     Dosage: 0.5 TABLETS, 1X/WEEK

REACTIONS (7)
  - Application site haemorrhage [Recovered/Resolved]
  - Application site irritation [Unknown]
  - Rash generalised [Recovering/Resolving]
  - Application site discolouration [Recovering/Resolving]
  - Application site discharge [Recovering/Resolving]
  - Drug ineffective [Recovering/Resolving]
  - Medical device complication [Recovered/Resolved]

NARRATIVE: CASE EVENT DATE: 2015
